FAERS Safety Report 7298926-7 (Version None)
Quarter: 2011Q1

REPORT INFORMATION
  Report Type: 
  Country: None (occurrence: None)
  Receive Date: 20110217
  Receipt Date: 20110209
  Transmission Date: 20110831
  Serious: Yes (Hospitalization)
  Sender: FDA-Public Use
  Company Number: PHHO2011FR02182

PATIENT
  Sex: Male
  Weight: 36 kg

DRUGS (6)
  1. ZOLEDRONATE [Suspect]
     Indication: BONE SARCOMA
     Dosage: UNK
     Route: 042
     Dates: start: 20101101
  2. VEPESID [Concomitant]
  3. METHOTREXATE [Suspect]
     Dosage: UNK
     Route: 042
     Dates: start: 20101029
  4. IFOSFAMIDE [Concomitant]
  5. VITAMIN D [Concomitant]
  6. CALCIUM [Concomitant]

REACTIONS (10)
  - PAIN [None]
  - NAUSEA [None]
  - SKIN DISORDER [None]
  - THROMBOPHLEBITIS SUPERFICIAL [None]
  - ENCEPHALOPATHY [None]
  - PYREXIA [None]
  - HEADACHE [None]
  - VOMITING [None]
  - ERYTHEMA [None]
  - SKIN MASS [None]
